FAERS Safety Report 11463588 (Version 1)
Quarter: 2015Q3

REPORT INFORMATION
  Report Type: Spontaneous
  Country: US (occurrence: US)
  Receive Date: 20150831
  Receipt Date: 20150831
  Transmission Date: 20151125
  Serious: No
  Sender: FDA-Public Use
  Company Number: US-ELI_LILLY_AND_COMPANY-US201103004897

PATIENT
  Sex: Female

DRUGS (3)
  1. HUMIRA [Concomitant]
     Active Substance: ADALIMUMAB
     Indication: ARTHRITIS
     Dosage: 1 D/F, OTHER
     Route: 023
  2. CYMBALTA [Suspect]
     Active Substance: DULOXETINE HYDROCHLORIDE
     Dosage: 30 MG, DAILY (1/D)
     Dates: start: 20110313
  3. CYMBALTA [Suspect]
     Active Substance: DULOXETINE HYDROCHLORIDE
     Indication: FIBROMYALGIA
     Dosage: 30 MG, DAILY (1/D)
     Dates: start: 20110311, end: 20110311

REACTIONS (2)
  - Intentional product misuse [Recovered/Resolved]
  - Diarrhoea [Unknown]
